FAERS Safety Report 23638943 (Version 2)
Quarter: 2024Q2

REPORT INFORMATION
  Report Type: Spontaneous
  Country: US (occurrence: US)
  Receive Date: 20240315
  Receipt Date: 20240418
  Transmission Date: 20240715
  Serious: Yes (Life-Threatening, Hospitalization, Other)
  Sender: FDA-Public Use
  Company Number: US-BoehringerIngelheim-2024-BI-014656

PATIENT
  Age: 69 Year
  Sex: Female

DRUGS (2)
  1. SPEVIGO [Suspect]
     Active Substance: SPESOLIMAB-SBZO
     Indication: Pustular psoriasis
     Dates: start: 202304
  2. SPEVIGO [Suspect]
     Active Substance: SPESOLIMAB-SBZO
     Dosage: 900MG OVER 90 MINUTES (RECEIVED 5MLS)
     Dates: start: 20240312, end: 20240312

REACTIONS (4)
  - Blood potassium decreased [Recovering/Resolving]
  - Unresponsive to stimuli [Recovered/Resolved]
  - Dizziness [Unknown]
  - Respiratory arrest [Recovered/Resolved]

NARRATIVE: CASE EVENT DATE: 20240312
